FAERS Safety Report 5234825-X (Version None)
Quarter: 2007Q1

REPORT INFORMATION
  Report Type: 
  Country: None (occurrence: None)
  Receive Date: 20070209
  Receipt Date: 20070202
  Transmission Date: 20070707
  Serious: Yes (Other)
  Sender: FDA-Public Use
  Company Number: JP-PFIZER INC-2007004866

PATIENT
  Sex: Female
  Weight: 39 kg

DRUGS (6)
  1. ZOLOFT [Suspect]
     Indication: DEPRESSION
     Dosage: DAILY DOSE:125MG-FREQ:FREQUENCY: BID
     Route: 048
     Dates: start: 20061114, end: 20070116
  2. EVAMYL [Concomitant]
     Route: 048
     Dates: start: 20061114, end: 20061227
  3. ROHYPNOL [Concomitant]
     Route: 048
  4. RISPERDAL [Concomitant]
     Route: 048
     Dates: start: 20061227, end: 20070108
  5. HIRNAMIN [Concomitant]
     Route: 048
     Dates: start: 20070109, end: 20070115
  6. LENDORMIN [Concomitant]
     Route: 048

REACTIONS (5)
  - BLOOD CREATINE PHOSPHOKINASE INCREASED [None]
  - CENTRAL NERVOUS SYSTEM STIMULATION [None]
  - HEPATIC FUNCTION ABNORMAL [None]
  - MYOGLOBINURIA [None]
  - NEUROLEPTIC MALIGNANT SYNDROME [None]
